FAERS Safety Report 10039658 (Version 2)
Quarter: 2014Q2

REPORT INFORMATION
  Report Type: Report from Study
  Country: IE (occurrence: IE)
  Receive Date: 20140326
  Receipt Date: 20140623
  Transmission Date: 20141212
  Serious: Yes (Hospitalization)
  Sender: FDA-Public Use
  Company Number: IE-JNJFOC-20140313622

PATIENT
  Age: 28 Year
  Sex: Female
  Weight: 75.3 kg

DRUGS (3)
  1. SIMPONI [Suspect]
     Indication: JUVENILE IDIOPATHIC ARTHRITIS
     Route: 058
     Dates: start: 20140501
  2. SIMPONI [Suspect]
     Indication: JUVENILE IDIOPATHIC ARTHRITIS
     Route: 058
     Dates: start: 20131219, end: 20140223
  3. ARCOXIA [Concomitant]
     Route: 065

REACTIONS (2)
  - Anal abscess [Recovered/Resolved]
  - Bartholin^s cyst [Recovered/Resolved]
